FAERS Safety Report 24831060 (Version 3)
Quarter: 2025Q1

REPORT INFORMATION
  Report Type: Spontaneous
  Country: US (occurrence: US)
  Receive Date: 20250110
  Receipt Date: 20250115
  Transmission Date: 20250409
  Serious: Yes (Other)
  Sender: PURDUE
  Company Number: US-PURDUE PHARMA-USA-2025-0314539

PATIENT
  Age: 53 Year
  Sex: Male

DRUGS (4)
  1. BUPRENORPHINE [Suspect]
     Active Substance: BUPRENORPHINE
     Indication: Product used for unknown indication
     Route: 065
  2. XANAX [Suspect]
     Active Substance: ALPRAZOLAM
     Indication: Product used for unknown indication
     Route: 065
  3. CLONOPIN [Suspect]
     Active Substance: CLONAZEPAM
     Indication: Product used for unknown indication
     Route: 065
  4. KLONOPIN [Suspect]
     Active Substance: CLONAZEPAM
     Indication: Product used for unknown indication
     Route: 065

REACTIONS (10)
  - Road traffic accident [Unknown]
  - Road traffic accident [Unknown]
  - Impaired driving ability [Unknown]
  - Impaired driving ability [Unknown]
  - Homicide [Unknown]
  - Physical assault [Unknown]
  - Drug screen positive [Unknown]
  - Dysarthria [Unknown]
  - Prescription drug used without a prescription [Unknown]
  - Somnolence [Unknown]

NARRATIVE: CASE EVENT DATE: 20231115
